FAERS Safety Report 23378835 (Version 1)
Quarter: 2024Q1

REPORT INFORMATION
  Report Type: Spontaneous
  Country: CH (occurrence: CH)
  Receive Date: 20240108
  Receipt Date: 20240108
  Transmission Date: 20240410
  Serious: Yes (Hospitalization, Other)
  Sender: FDA-Public Use
  Company Number: None

PATIENT
  Age: 72 Year
  Sex: Female
  Weight: 63 kg

DRUGS (3)
  1. CARBOPLATIN [Suspect]
     Active Substance: CARBOPLATIN
     Indication: Small cell lung cancer
     Dosage: 450 MG N/A DOSE EVERY N/A N/A
     Route: 042
     Dates: start: 20230811, end: 20230925
  2. ETOPOSIDE [Suspect]
     Active Substance: ETOPOSIDE
     Indication: Small cell lung cancer
     Dosage: 100 MG/M2/JOUR AUX JOURS J1 ? J3 ; CYCLICAL
     Route: 042
     Dates: start: 20230811, end: 20230925
  3. IMFINZI [Suspect]
     Active Substance: DURVALUMAB
     Indication: Small cell lung cancer
     Dosage: 325 MG (5 MG/KG, 1 SEULE DOSE ADMINISTR?E. ; IN TOTAL)
     Route: 042
     Dates: start: 20230925, end: 20230925

REACTIONS (5)
  - Serositis [Unknown]
  - Ascites [Unknown]
  - Arthralgia [Recovered/Resolved]
  - Oesophagitis [Recovered/Resolved]
  - Colitis [Recovered/Resolved]

NARRATIVE: CASE EVENT DATE: 20231001
